FAERS Safety Report 6252943-4 (Version None)
Quarter: 2009Q3

REPORT INFORMATION
  Report Type: 
  Country: None (occurrence: None)
  Receive Date: 20090701
  Receipt Date: 20090622
  Transmission Date: 20100115
  Serious: Yes (Disabling)
  Sender: FDA-Public Use
  Company Number: A0794655A

PATIENT
  Age: 56 Year
  Sex: Female

DRUGS (4)
  1. ARIXTRA [Suspect]
     Indication: DEEP VEIN THROMBOSIS
     Dates: start: 20090512
  2. TYLENOL (CAPLET) [Concomitant]
  3. TRAMADOL [Concomitant]
  4. BENADRYL [Concomitant]

REACTIONS (4)
  - DECREASED APPETITE [None]
  - DIARRHOEA [None]
  - OEDEMA [None]
  - PYREXIA [None]
